FAERS Safety Report 19925607 (Version 2)
Quarter: 2021Q4

REPORT INFORMATION
  Report Type: Spontaneous
  Country: US (occurrence: US)
  Receive Date: 20211007
  Receipt Date: 20211011
  Transmission Date: 20220303
  Serious: No
  Sender: FDA-Public Use
  Company Number: US-JNJFOC-20210934967

PATIENT
  Sex: Female
  Weight: 49.49 kg

DRUGS (5)
  1. SIMPONI [Suspect]
     Active Substance: GOLIMUMAB
     Indication: Rheumatoid arthritis
     Route: 058
  2. SIMPONI ARIA [Suspect]
     Active Substance: GOLIMUMAB
     Indication: Rheumatoid arthritis
     Route: 042
  3. METHOTREXATE [Concomitant]
     Active Substance: METHOTREXATE
     Route: 065
  4. COVID-19 VACCINE [Concomitant]
     Route: 065
  5. XELJANZ [Concomitant]
     Active Substance: TOFACITINIB CITRATE

REACTIONS (8)
  - Therapeutic product effect decreased [Unknown]
  - Diarrhoea [Unknown]
  - Hypotension [Unknown]
  - Product administration error [Unknown]
  - Off label use [Unknown]
  - Pain [Unknown]
  - Insomnia [Unknown]
  - Visual field defect [Unknown]
